FAERS Safety Report 18023913 (Version 2)
Quarter: 2020Q3

REPORT INFORMATION
  Report Type: Spontaneous
  Country: US (occurrence: US)
  Receive Date: 20200715
  Receipt Date: 20200901
  Transmission Date: 20201103
  Serious: Yes (Hospitalization, Other)
  Sender: FDA-Public Use
  Company Number: US-SA-2020SA180974

PATIENT

DRUGS (2)
  1. DUPIXENT [Suspect]
     Active Substance: DUPILUMAB
     Dosage: 300 MG, OTHER
     Route: 058
     Dates: start: 202004
  2. DUPIXENT [Suspect]
     Active Substance: DUPILUMAB
     Dosage: 200 MG, OTHER
     Route: 058
     Dates: start: 202003

REACTIONS (5)
  - Post procedural pneumonia [Unknown]
  - Chemotherapy [Unknown]
  - Dyspnoea [Unknown]
  - Lymphoma [Unknown]
  - Bronchoplasty [Unknown]

NARRATIVE: CASE EVENT DATE: 2020
